FAERS Safety Report 8964324 (Version 1)
Quarter: 2012Q4

REPORT INFORMATION
  Report Type: 
  Country: US (occurrence: US)
  Receive Date: 20121214
  Receipt Date: 20121214
  Transmission Date: 20130627
  Serious: No
  Sender: FDA-Public Use
  Company Number: US-GLAXOSMITHKLINE-A0967877A

PATIENT
  Age: 60 Year
  Sex: Male

DRUGS (3)
  1. AVODART [Suspect]
     Indication: BENIGN PROSTATIC HYPERPLASIA
     Dosage: .5MG Per day
     Route: 048
     Dates: start: 20120214
  2. BLOOD PRESSURE MEDICATION [Concomitant]
  3. VITAMINS [Concomitant]

REACTIONS (1)
  - Diarrhoea [Unknown]
